FAERS Safety Report 18203592 (Version 4)
Quarter: 2020Q4

REPORT INFORMATION
  Report Type: Spontaneous
  Country: US (occurrence: US)
  Receive Date: 20200827
  Receipt Date: 20201204
  Transmission Date: 20210113
  Serious: Yes (Hospitalization, Other)
  Sender: FDA-Public Use
  Company Number: US-ALEXION-A202012455

PATIENT
  Sex: Female

DRUGS (1)
  1. SOLIRIS [Suspect]
     Active Substance: ECULIZUMAB
     Indication: ATYPICAL HAEMOLYTIC URAEMIC SYNDROME
     Dosage: UNK
     Route: 065

REACTIONS (8)
  - Haemoglobin decreased [Unknown]
  - Blood pressure increased [Not Recovered/Not Resolved]
  - Cardiac failure [Unknown]
  - Laboratory test abnormal [Unknown]
  - Weight increased [Unknown]
  - Dyspnoea [Unknown]
  - Ejection fraction abnormal [Recovering/Resolving]
  - Cardiac murmur [Unknown]

NARRATIVE: CASE EVENT DATE: 202002
